FAERS Safety Report 4428893-2 (Version None)
Quarter: 2004Q3

REPORT INFORMATION
  Report Type: 
  Country: None (occurrence: None)
  Receive Date: 20040816
  Receipt Date: 20040806
  Transmission Date: 20050211
  Serious: Yes (Life-Threatening, Other)
  Sender: FDA-Public Use
  Company Number: 04-08-1151

PATIENT
  Age: 30 Year
  Sex: Female
  Weight: 75 kg

DRUGS (6)
  1. METRONIDAZOLE [Suspect]
     Indication: PELVIC INFLAMMATORY DISEASE
     Dosage: ORAL
     Route: 048
     Dates: start: 20040501, end: 20040507
  2. OFLOXACIN [Suspect]
     Indication: PELVIC INFLAMMATORY DISEASE
     Dosage: ORAL
     Route: 048
     Dates: start: 20040501, end: 20040507
  3. SENNA [Concomitant]
  4. FLUOXETINE [Concomitant]
  5. MEFENAMIC ACID [Concomitant]
  6. FUCIDINE CAP [Concomitant]

REACTIONS (4)
  - ANAPHYLACTIC REACTION [None]
  - DYSPHAGIA [None]
  - HEADACHE [None]
  - PHARYNGOLARYNGEAL PAIN [None]
